FAERS Safety Report 16660740 (Version 4)
Quarter: 2019Q3

REPORT INFORMATION
  Report Type: Report from Study
  Country: US (occurrence: US)
  Receive Date: 20190802
  Receipt Date: 20190912
  Transmission Date: 20191004
  Serious: Yes (Other)
  Sender: FDA-Public Use
  Company Number: US-PFIZER INC-2019328027

PATIENT
  Sex: Male

DRUGS (2)
  1. EPINEPHRINE. [Suspect]
     Active Substance: EPINEPHRINE
     Indication: LOCAL ANAESTHESIA
     Dosage: UNK (INJECTION)
  2. PROCAINE [Suspect]
     Active Substance: PROCAINE
     Indication: LOCAL ANAESTHESIA
     Dosage: UNK

REACTIONS (4)
  - Extremity necrosis [Unknown]
  - Gangrene [Unknown]
  - Drug level above therapeutic [Unknown]
  - Oedema [Recovered/Resolved]
